FAERS Safety Report 9057987 (Version 1)
Quarter: 2013Q1

REPORT INFORMATION
  Report Type: Spontaneous
  Country: US (occurrence: None)
  Receive Date: 20130204
  Receipt Date: 20130204
  Transmission Date: 20140127
  Serious: Yes (Hospitalization)
  Sender: FDA-Public Use
  Company Number: None

PATIENT
  Age: 79 Year
  Sex: Male
  Weight: 90.71 kg

DRUGS (8)
  1. XARELTO 20 MG JANSSEN [Suspect]
  2. ASPIRIN [Concomitant]
  3. BISOPROLOL [Concomitant]
  4. BENICAR [Concomitant]
  5. ALBUTEROL [Concomitant]
  6. ADVAIR [Concomitant]
  7. SPIRIVA [Concomitant]
  8. VICODIN [Concomitant]

REACTIONS (2)
  - Haemorrhage [None]
  - Abdominal discomfort [None]
